FAERS Safety Report 25690012 (Version 2)
Quarter: 2025Q4

REPORT INFORMATION
  Report Type: Spontaneous
  Country: US (occurrence: US)
  Receive Date: 20250818
  Receipt Date: 20251003
  Transmission Date: 20260118
  Serious: No
  Sender: STALLERGENES
  Company Number: US-STALCOR-2025-AER-02065

PATIENT
  Sex: Male

DRUGS (5)
  1. PALFORZIA [Suspect]
     Active Substance: PEANUT
     Indication: Food allergy
     Dosage: 3X20MGAND100MG: LVL8: MIX CONTENTS OF CAPSULES WELL WITH SEMISOLID FOOD AS DIRECTED AND CONSUME ONCE
     Route: 048
  2. EPINEPHRINE [Concomitant]
     Active Substance: EPINEPHRINE
     Indication: Prophylaxis
  3. FLUTICASONE [Concomitant]
     Active Substance: FLUTICASONE
     Indication: Product used for unknown indication
  4. LACTULOSE [Concomitant]
     Active Substance: LACTULOSE
     Indication: Product used for unknown indication
     Dosage: 10 GRAM /15 MILLILITRE
  5. ZYRTEC [Concomitant]
     Active Substance: CETIRIZINE HYDROCHLORIDE
     Indication: Product used for unknown indication

REACTIONS (4)
  - Suspected product quality issue [Recovered/Resolved]
  - Product use complaint [Recovered/Resolved]
  - Therapy cessation [Recovered/Resolved]
  - Product substitution [Recovered/Resolved]
